FAERS Safety Report 18386094 (Version 1)
Quarter: 2020Q4

REPORT INFORMATION
  Report Type: Other
  Country: JP (occurrence: JP)
  Receive Date: 20201015
  Receipt Date: 20201015
  Transmission Date: 20210114
  Serious: Yes (Hospitalization)
  Sender: FDA-Public Use
  Company Number: JP-AJANTA PHARMA USA INC.-2092812

PATIENT
  Age: 19 Year
  Sex: Male

DRUGS (1)
  1. CLARITHROMYCIN (ANDA 206714) [Suspect]
     Active Substance: CLARITHROMYCIN
     Indication: ENTERITIS
     Route: 048

REACTIONS (1)
  - Kounis syndrome [Recovered/Resolved]
